FAERS Safety Report 11695813 (Version 7)
Quarter: 2017Q1

REPORT INFORMATION
  Report Type: Spontaneous
  Country: US (occurrence: US)
  Receive Date: 20151104
  Receipt Date: 20170213
  Transmission Date: 20170428
  Serious: Yes (Congenital Anomaly, Other)
  Sender: FDA-Public Use
  Company Number: PHEH2015US022356

PATIENT
  Sex: Female

DRUGS (2)
  1. ONDANSETRON HYDROCHLORIDE. [Suspect]
     Active Substance: ONDANSETRON HYDROCHLORIDE
     Indication: FOETAL EXPOSURE DURING PREGNANCY
     Route: 064
  2. ZOFRAN [Suspect]
     Active Substance: ONDANSETRON HYDROCHLORIDE
     Indication: FOETAL EXPOSURE DURING PREGNANCY
     Route: 064

REACTIONS (27)
  - Congenital anomaly [Unknown]
  - Otitis media chronic [Unknown]
  - Sinusitis [Unknown]
  - Rhinorrhoea [Unknown]
  - Developmental delay [Unknown]
  - Injury [Unknown]
  - Anhedonia [Unknown]
  - Swelling face [Unknown]
  - Eating disorder [Unknown]
  - Cleft palate [Unknown]
  - Foetal exposure during pregnancy [Unknown]
  - Hypoglycaemia neonatal [Unknown]
  - Jaundice neonatal [Unknown]
  - Infantile apnoea [Unknown]
  - Tachycardia [Unknown]
  - Insomnia [Unknown]
  - Lymphadenitis [Unknown]
  - Neonatal respiratory distress syndrome [Unknown]
  - Transient tachypnoea of the newborn [Unknown]
  - Nasal obstruction [Unknown]
  - Ear pain [Unknown]
  - Otorrhoea [Unknown]
  - Craniofacial deformity [Unknown]
  - Speech disorder [Unknown]
  - Pain [Unknown]
  - Emotional distress [Unknown]
  - Anxiety [Unknown]
